FAERS Safety Report 10014568 (Version 1)
Quarter: 2014Q1

REPORT INFORMATION
  Report Type: Report from Study
  Country: US (occurrence: US)
  Receive Date: 20140317
  Receipt Date: 20140317
  Transmission Date: 20141002
  Serious: Yes (Hospitalization)
  Sender: FDA-Public Use
  Company Number: US-SA-2014SA033203

PATIENT
  Age: 63 Year
  Sex: Female

DRUGS (4)
  1. FLUOROURACIL [Suspect]
     Indication: RECTAL CANCER
     Dosage: INFUSION, 2-WEEK CYCLE
     Route: 065
  2. OXALIPLATIN [Suspect]
     Indication: RECTAL CANCER
     Dosage: INFUSION, 2 WEEK CYCLE
     Route: 065
  3. LEUCOVORIN [Suspect]
     Indication: RECTAL CANCER
     Dosage: INFUSION, 2 WEEK CYCLE
     Route: 065
  4. BEVACIZUMAB [Suspect]
     Indication: RECTAL CANCER
     Dosage: INFUSION, 2 WEEK CYCLE
     Route: 065

REACTIONS (1)
  - Arrhythmia [Unknown]
